FAERS Safety Report 11353176 (Version 1)
Quarter: 2015Q3

REPORT INFORMATION
  Report Type: Spontaneous
  Country: US (occurrence: US)
  Receive Date: 20150807
  Receipt Date: 20150807
  Transmission Date: 20151125
  Serious: No
  Sender: FDA-Public Use
  Company Number: US-JNJFOC-20150515986

PATIENT
  Age: 64 Year
  Sex: Female
  Weight: 81.65 kg

DRUGS (4)
  1. CENTRUM SILVER [Concomitant]
     Active Substance: VITAMINS
     Indication: ROUTINE HEALTH MAINTENANCE
     Dosage: DAILY SINCE YEARS
     Route: 065
  2. CALCIUM [Concomitant]
     Active Substance: CALCIUM
     Indication: ROUTINE HEALTH MAINTENANCE
     Dosage: DAILY SINCE YEARS
     Route: 065
  3. WOMENS ROGAINE UNSCENTED [Suspect]
     Active Substance: MINOXIDIL
     Route: 061
  4. WOMENS ROGAINE UNSCENTED [Suspect]
     Active Substance: MINOXIDIL
     Indication: ALOPECIA
     Dosage: 1/2 CAP FULL IN EVERY NIGHT, STARTED FROM MIDDLE OF FEBRUARY 2015 AND ONLY USED IT FOR ABOUT 3 DAYS
     Route: 061
     Dates: start: 201502, end: 201502

REACTIONS (2)
  - Pain of skin [Recovered/Resolved]
  - Pruritus [Recovered/Resolved]
